FAERS Safety Report 9719059 (Version 1)
Quarter: 2013Q4

REPORT INFORMATION
  Report Type: Report from Study
  Country: SK (occurrence: SK)
  Receive Date: 20131127
  Receipt Date: 20131127
  Transmission Date: 20140711
  Serious: Yes (Hospitalization)
  Sender: FDA-Public Use
  Company Number: SK-BAYER-2013-137888

PATIENT
  Sex: Female

DRUGS (1)
  1. MIRENA [Suspect]
     Dosage: 20 ?G/D, CONT
     Route: 015
     Dates: end: 20090810

REACTIONS (6)
  - Salpingitis [Recovering/Resolving]
  - Oophoritis [Recovering/Resolving]
  - Menorrhagia [None]
  - Menstruation irregular [None]
  - Polymenorrhoea [None]
  - Vaginal infection [None]
